FAERS Safety Report 17269048 (Version 1)
Quarter: 2020Q1

REPORT INFORMATION
  Report Type: Spontaneous
  Country: US (occurrence: US)
  Receive Date: 20200114
  Receipt Date: 20200114
  Transmission Date: 20200409
  Serious: Yes (Death)
  Sender: FDA-Public Use
  Company Number: None

PATIENT
  Age: 85 Year
  Sex: Male

DRUGS (1)
  1. RIVAROXABAN [Suspect]
     Active Substance: RIVAROXABAN

REACTIONS (4)
  - Cerebral haemorrhage [None]
  - Respiratory failure [None]
  - Subdural haematoma [None]
  - Post procedural complication [None]

NARRATIVE: CASE EVENT DATE: 20190526
